FAERS Safety Report 5966770-6 (Version None)
Quarter: 2008Q4

REPORT INFORMATION
  Report Type: 
  Country: None (occurrence: None)
  Receive Date: 20081119
  Receipt Date: 20080819
  Transmission Date: 20090506
  Serious: No
  Sender: FDA-Public Use
  Company Number: WAES 0808USA03700

PATIENT
  Age: 71 Year
  Sex: Female

DRUGS (4)
  1. JANUVIA [Suspect]
     Indication: TYPE 2 DIABETES MELLITUS
     Dosage: 100 MG/DAILY/PO
     Route: 048
     Dates: start: 20080708
  2. COZAAR [Concomitant]
  3. METANX [Concomitant]
  4. GLIMEPIRIDE [Concomitant]

REACTIONS (2)
  - PARAESTHESIA [None]
  - RASH MORBILLIFORM [None]
